FAERS Safety Report 25984345 (Version 1)
Quarter: 2025Q4

REPORT INFORMATION
  Report Type: Spontaneous
  Country: US (occurrence: US)
  Receive Date: 20251031
  Receipt Date: 20251031
  Transmission Date: 20260117
  Serious: Yes (Other)
  Sender: PRINSTON PHARMACEUTICAL
  Company Number: US-PRINSTON PHARMACEUTICAL INC.-2025PRN00348

PATIENT
  Sex: Female

DRUGS (3)
  1. LISINOPRIL [Suspect]
     Active Substance: LISINOPRIL
     Dosage: (2 TABLETS) 20 MG, 1X/DAY
     Dates: start: 2024
  2. LISINOPRIL [Suspect]
     Active Substance: LISINOPRIL
     Dosage: 17.5 MG, 1X/DAY
  3. LISINOPRIL [Suspect]
     Active Substance: LISINOPRIL
     Dosage: 20 MG, 1X/DAY
     Dates: start: 202508

REACTIONS (4)
  - Tardive akathisia [Recovering/Resolving]
  - Insomnia [Recovering/Resolving]
  - Skin burning sensation [Recovering/Resolving]
  - Wrong technique in product usage process [Unknown]
